FAERS Safety Report 7390137-X (Version None)
Quarter: 2011Q2

REPORT INFORMATION
  Report Type: 
  Country: None (occurrence: None)
  Receive Date: 20110401
  Receipt Date: 20110321
  Transmission Date: 20111010
  Serious: Yes (Hospitalization, Other)
  Sender: FDA-Public Use
  Company Number: PHHY2011ES23044

PATIENT
  Age: 71 Year
  Sex: Male

DRUGS (1)
  1. CERTICAN [Suspect]
     Indication: NEPHROPATHY TOXIC
     Dosage: 0.75 MG, EVERY 12 HOURS
     Route: 048
     Dates: start: 20091203, end: 20100121

REACTIONS (7)
  - CIRCULATORY COLLAPSE [None]
  - PULMONARY HYPERTENSION [None]
  - DIZZINESS [None]
  - SYNCOPE [None]
  - PERICARDIAL EFFUSION [None]
  - MITRAL VALVE INCOMPETENCE [None]
  - CARDIAC FAILURE [None]
